FAERS Safety Report 6459899-X (Version None)
Quarter: 2009Q4

REPORT INFORMATION
  Report Type: 
  Country: None (occurrence: None)
  Receive Date: 20091129
  Receipt Date: 20091116
  Transmission Date: 20100525
  Serious: Yes (Hospitalization, Other)
  Sender: FDA-Public Use
  Company Number: PHEH2009US16189

PATIENT
  Sex: Female
  Weight: 65 kg

DRUGS (2)
  1. EXJADE [Suspect]
     Indication: IRON OVERLOAD
     Dosage: 1250 MG, QD
     Route: 048
     Dates: start: 20090813
  2. EXJADE [Suspect]
     Indication: SICKLE CELL ANAEMIA

REACTIONS (6)
  - INFECTION [None]
  - INFLUENZA [None]
  - PAIN [None]
  - PNEUMONIA [None]
  - PYREXIA [None]
  - SICKLE CELL ANAEMIA WITH CRISIS [None]
